FAERS Safety Report 14480400 (Version 1)
Quarter: 2018Q1

REPORT INFORMATION
  Report Type: Spontaneous
  Country: CN (occurrence: CN)
  Receive Date: 20180202
  Receipt Date: 20180202
  Transmission Date: 20180509
  Serious: Yes (Hospitalization)
  Sender: FDA-Public Use
  Company Number: CN-PFIZER INC-2018046230

PATIENT
  Age: 62 Year
  Sex: Female
  Weight: 54 kg

DRUGS (3)
  1. CARBAMAZEPINE. [Concomitant]
     Active Substance: CARBAMAZEPINE
     Indication: NEUROMYELITIS OPTICA SPECTRUM DISORDER
     Dosage: 0.2 G, 3X/DAY
     Route: 048
     Dates: start: 20171011, end: 20171120
  2. LYRICA [Suspect]
     Active Substance: PREGABALIN
     Indication: NEUROMYELITIS OPTICA SPECTRUM DISORDER
     Dosage: 75 MG, 2X/DAY
     Route: 048
     Dates: start: 20171024, end: 20171120
  3. LYRICA [Suspect]
     Active Substance: PREGABALIN
     Dosage: UNK
     Dates: start: 20171124

REACTIONS (7)
  - Mouth ulceration [Recovering/Resolving]
  - Rash [Recovering/Resolving]
  - Mouth haemorrhage [Recovering/Resolving]
  - Pyrexia [Recovering/Resolving]
  - Swelling face [Recovering/Resolving]
  - Scab [Recovering/Resolving]
  - Generalised erythema [Recovering/Resolving]

NARRATIVE: CASE EVENT DATE: 20171121
